FAERS Safety Report 9722216 (Version 2)
Quarter: 2014Q1

REPORT INFORMATION
  Report Type: Spontaneous
  Country: ES (occurrence: ES)
  Receive Date: 20131202
  Receipt Date: 20140121
  Transmission Date: 20141002
  Serious: Yes (Other)
  Sender: FDA-Public Use
  Company Number: ES-AMGEN-ESPSP2013084279

PATIENT
  Age: 61 Year
  Sex: Female
  Weight: 109.5 kg

DRUGS (6)
  1. MIMPARA [Suspect]
     Indication: HYPERPARATHYROIDISM SECONDARY
     Dosage: 30 MG, QD
     Route: 048
     Dates: start: 20111108, end: 20131102
  2. ATORVASTATIN [Concomitant]
     Indication: HYPERCHOLESTEROLAEMIA
     Dosage: 1 DF, QD
     Route: 048
     Dates: start: 20110119
  3. RENAGEL                            /01459901/ [Concomitant]
     Indication: HYPERPHOSPHATAEMIA
     Dosage: 1 DF, TID
     Route: 048
     Dates: start: 20110113
  4. ADIRO [Concomitant]
     Indication: CARDIAC DISORDER
     Dosage: 1 DF, QD
     Route: 048
     Dates: start: 20110325
  5. OMEPRAZOLE [Concomitant]
     Indication: HIATUS HERNIA
     Dosage: 1 DF, QD
     Route: 048
     Dates: start: 20120228
  6. SERETIDE [Concomitant]
     Indication: ASTHMA
     Dosage: 1 PUFF/12H
     Route: 045
     Dates: start: 20120228

REACTIONS (2)
  - Eye movement disorder [Recovered/Resolved]
  - Blood parathyroid hormone increased [Unknown]
